FAERS Safety Report 20822802 (Version 7)
Quarter: 2022Q4

REPORT INFORMATION
  Report Type: Report from Study
  Country: BR (occurrence: BR)
  Receive Date: 20220512
  Receipt Date: 20221017
  Transmission Date: 20230113
  Serious: Yes (Other)
  Sender: FDA-Public Use
  Company Number: BR-NOVARTISPH-NVSC2022BR075582

PATIENT
  Age: 68 Year
  Sex: Female
  Weight: 75 kg

DRUGS (9)
  1. COSENTYX [Suspect]
     Active Substance: SECUKINUMAB
     Indication: Rheumatoid arthritis
     Dosage: 300 MG, QW (WEEK 0,1,2,3,4)
     Route: 058
  2. COSENTYX [Suspect]
     Active Substance: SECUKINUMAB
     Indication: Psoriasis
     Dosage: 300 MG, QMO
     Route: 058
  3. COSENTYX [Suspect]
     Active Substance: SECUKINUMAB
     Indication: Psoriatic arthropathy
     Dosage: 2 DOSAGE FORM (2 SYRINGES)
     Route: 058
     Dates: start: 20220405, end: 20220405
  4. COSENTYX [Suspect]
     Active Substance: SECUKINUMAB
     Indication: Spondylitis
     Dosage: 300 MG, QW (02 AMPOULES OF 150 MG)
     Route: 058
     Dates: start: 20220406
  5. COSENTYX [Suspect]
     Active Substance: SECUKINUMAB
     Dosage: 2 DOSAGE FORM (2 SYRINGES)
     Route: 058
     Dates: start: 20220411, end: 20220411
  6. COSENTYX [Suspect]
     Active Substance: SECUKINUMAB
     Dosage: 2 DOSAGE FORM (2 SYRINGES)
     Route: 058
     Dates: start: 20220411, end: 20220411
  7. COSENTYX [Suspect]
     Active Substance: SECUKINUMAB
     Dosage: UNK, QW
     Route: 065
     Dates: start: 20220412, end: 202205
  8. METHOTREXATE [Concomitant]
     Active Substance: METHOTREXATE
     Indication: Psoriatic arthropathy
     Dosage: 7 DOSAGE FORM (2.5 MG), QW
     Route: 048
  9. LORAZEPAM [Concomitant]
     Active Substance: LORAZEPAM
     Indication: Sleep disorder
     Dosage: 2 MG, QD  (AT NIGHT)
     Route: 048

REACTIONS (20)
  - Injection site pruritus [Recovered/Resolved]
  - COVID-19 [Recovered/Resolved]
  - Pain [Not Recovered/Not Resolved]
  - Myalgia [Recovered/Resolved]
  - Rhinitis [Not Recovered/Not Resolved]
  - Headache [Not Recovered/Not Resolved]
  - Sinusitis [Not Recovered/Not Resolved]
  - Pain in extremity [Not Recovered/Not Resolved]
  - Pyrexia [Recovered/Resolved]
  - Cough [Recovered/Resolved]
  - Hypertension [Not Recovered/Not Resolved]
  - Pruritus [Recovered/Resolved]
  - Headache [Recovered/Resolved]
  - Nasal discomfort [Recovered/Resolved]
  - Throat irritation [Recovered/Resolved]
  - Oedema peripheral [Recovered/Resolved]
  - Product use in unapproved indication [Recovered/Resolved]
  - Wrong technique in product usage process [Recovered/Resolved]
  - Inappropriate schedule of product administration [Recovered/Resolved]
  - Product prescribing error [Unknown]

NARRATIVE: CASE EVENT DATE: 20220405
